FAERS Safety Report 24944256 (Version 2)
Quarter: 2025Q1

REPORT INFORMATION
  Report Type: Report from Study
  Country: US (occurrence: US)
  Receive Date: 20250208
  Receipt Date: 20250208
  Transmission Date: 20250408
  Serious: No
  Sender: ABBVIE
  Company Number: US-ABBVIE-6124293

PATIENT
  Sex: Female

DRUGS (2)
  1. BOTOX [Suspect]
     Active Substance: ONABOTULINUMTOXINA
     Indication: Migraine
     Route: 065
  2. QULIPTA [Concomitant]
     Active Substance: ATOGEPANT
     Indication: Migraine

REACTIONS (3)
  - Neck pain [Unknown]
  - Headache [Unknown]
  - Therapeutic response shortened [Unknown]
